FAERS Safety Report 4291691-7 (Version None)
Quarter: 2004Q1

REPORT INFORMATION
  Report Type: 
  Country: None (occurrence: None)
  Receive Date: 20040211
  Receipt Date: 20020807
  Transmission Date: 20041129
  Serious: No
  Sender: FDA-Public Use
  Company Number: US-GLAXOSMITHKLINE-A0377212A

PATIENT
  Age: 46 Year
  Sex: Female

DRUGS (2)
  1. IMITREX [Suspect]
     Indication: MIGRAINE
     Route: 058
  2. SEIZURE MEDICATION [Concomitant]

REACTIONS (5)
  - HEART RATE INCREASED [None]
  - INJECTION SITE BURNING [None]
  - MIGRAINE [None]
  - PHARMACEUTICAL PRODUCT COMPLAINT [None]
  - URTICARIA [None]
